FAERS Safety Report 4831107-2 (Version None)
Quarter: 2005Q4

REPORT INFORMATION
  Report Type: 
  Country: None (occurrence: None)
  Receive Date: 20051114
  Receipt Date: 20051027
  Transmission Date: 20060501
  Serious: Yes (Other)
  Sender: FDA-Public Use
  Company Number: CA_050207785

PATIENT
  Age: 74 Year
  Sex: Female

DRUGS (12)
  1. FORTEO [Suspect]
     Indication: OSTEOPOROSIS
     Dosage: 20 UG DAY
     Dates: start: 20050208
  2. ALTACE (RAMIPRIL DURA) [Concomitant]
  3. FUROSEMIDE [Concomitant]
  4. DITROPAN [Concomitant]
  5. DIDROCAL [Concomitant]
  6. BONAMINE (MECLOZINE HYDROCHLORIDE) [Concomitant]
  7. METAMUCIL (PLANTAGO OVATA) [Concomitant]
  8. LOSEC (OMEPRAZOLE SODIUM) [Concomitant]
  9. NORVASC [Concomitant]
  10. LIPITOR [Concomitant]
  11. SYMBICORT [Concomitant]
  12. NOVASEN (ACETYLSALICYLIC ACID) [Concomitant]

REACTIONS (12)
  - ASTHENIA [None]
  - CONFUSIONAL STATE [None]
  - CONSTIPATION [None]
  - DIZZINESS [None]
  - DYSARTHRIA [None]
  - DYSPNOEA [None]
  - HYPERAESTHESIA [None]
  - INJECTION SITE REACTION [None]
  - NAUSEA [None]
  - SPEECH DISORDER [None]
  - STOMACH DISCOMFORT [None]
  - TRANSIENT ISCHAEMIC ATTACK [None]
